FAERS Safety Report 17007635 (Version 1)
Quarter: 2019Q4

REPORT INFORMATION
  Report Type: Spontaneous
  Country: FR (occurrence: FR)
  Receive Date: 20191108
  Receipt Date: 20191108
  Transmission Date: 20200122
  Serious: Yes (Hospitalization)
  Sender: FDA-Public Use
  Company Number: FR-TEVA-2019-FR-1134264

PATIENT
  Age: 66 Year
  Sex: Female
  Weight: 61.7 kg

DRUGS (11)
  1. ALPRAZOLAM. [Concomitant]
     Active Substance: ALPRAZOLAM
  2. LASILIX SPECIAL 500 MG, COMPRIME SECABLE [Suspect]
     Active Substance: FUROSEMIDE
     Indication: HYPONATRAEMIA
     Dosage: 250MG/ DAY
     Route: 048
     Dates: end: 201810
  3. CRESTOR [Concomitant]
     Active Substance: ROSUVASTATIN CALCIUM
  4. SPIRONOLACTONE. [Suspect]
     Active Substance: SPIRONOLACTONE
     Indication: HYPONATRAEMIA
     Dosage: 50MG/ DAY
     Route: 048
     Dates: end: 201810
  5. ZELITREX 500 MG, COMPRIME ENROBE [Concomitant]
     Active Substance: VALACYCLOVIR HYDROCHLORIDE
  6. EZETROL 10 MG, COMPRIME [Concomitant]
     Active Substance: EZETIMIBE
  7. CHLORHYDRATE DE DULOXETINE [Concomitant]
     Active Substance: DULOXETINE HYDROCHLORIDE
  8. DIFFU K, GELULE [Concomitant]
     Active Substance: POTASSIUM CHLORIDE
  9. PANTOPRAZOLE [Concomitant]
     Active Substance: PANTOPRAZOLE
  10. COUMADINE 5 MG, COMPRIME SECABLE [Concomitant]
     Active Substance: WARFARIN SODIUM
  11. ASPIRINE PROTECT [Concomitant]
     Active Substance: ASPIRIN

REACTIONS (2)
  - Orthostatic hypotension [Recovered/Resolved]
  - Malaise [Recovered/Resolved]

NARRATIVE: CASE EVENT DATE: 20181003
